FAERS Safety Report 5010002-2 (Version None)
Quarter: 2006Q2

REPORT INFORMATION
  Report Type: 
  Country: None (occurrence: None)
  Receive Date: 20060522
  Receipt Date: 20060510
  Transmission Date: 20061013
  Serious: Yes (Death)
  Sender: FDA-Public Use
  Company Number: E2020-00036-SPO-JP

PATIENT
  Age: 72 Year
  Sex: Female
  Weight: 45 kg

DRUGS (9)
  1. ARICEPT [Suspect]
     Indication: DEMENTIA ALZHEIMER'S TYPE
     Dosage: SEE IMAGE
     Route: 048
     Dates: start: 20060223, end: 20060309
  2. ARICEPT [Suspect]
     Indication: DEMENTIA ALZHEIMER'S TYPE
     Dosage: SEE IMAGE
     Route: 048
     Dates: start: 20060310, end: 20060510
  3. SELBEX               (TEPRENONE) [Concomitant]
  4. FAMOTIDINE [Concomitant]
  5. PRAVASTATIN [Concomitant]
  6. SPLENDIL                   (FELODIPINE) [Concomitant]
  7. PURSENNID             (SENNOSIDE) [Concomitant]
  8. SINEMET [Concomitant]
  9. DOPS            (DROXIDOPA) [Concomitant]

REACTIONS (2)
  - FALL [None]
  - MYOCARDIAL INFARCTION [None]
